FAERS Safety Report 10692591 (Version 2)
Quarter: 2015Q1

REPORT INFORMATION
  Report Type: Spontaneous
  Country: FR (occurrence: FR)
  Receive Date: 20150106
  Receipt Date: 20150113
  Transmission Date: 20150720
  Serious: Yes (Hospitalization)
  Sender: FDA-Public Use
  Company Number: FR-TEVA-532067ISR

PATIENT
  Age: 36 Year
  Sex: Female

DRUGS (1)
  1. COPAXONE [Suspect]
     Active Substance: GLATIRAMER ACETATE
     Dosage: 20 MG
     Route: 058
     Dates: start: 20141226

REACTIONS (5)
  - Fatigue [Unknown]
  - Diplopia [Unknown]
  - Multiple sclerosis relapse [Unknown]
  - Balance disorder [Unknown]
  - Vertigo [Unknown]

NARRATIVE: CASE EVENT DATE: 20141229
